FAERS Safety Report 4750983-5 (Version None)
Quarter: 2005Q3

REPORT INFORMATION
  Report Type: 
  Country: None (occurrence: None)
  Receive Date: 20050822
  Receipt Date: 20050810
  Transmission Date: 20060218
  Serious: Yes (Hospitalization, Other)
  Sender: FDA-Public Use
  Company Number: 2005113325

PATIENT
  Sex: Female
  Weight: 58.9676 kg

DRUGS (16)
  1. GABAPENTIN [Suspect]
     Indication: ABNORMAL BEHAVIOUR
     Dosage: 4400 MG (4 IN 1 D),
     Dates: start: 20020101
  2. PROVIGIL [Concomitant]
  3. FOSAMAX [Concomitant]
  4. MIACALCIN [Concomitant]
  5. CALCIUM WITH VITAMIN D (CALCIUM PHOSPHATE, CALCIUM SODIUM LACTATE, ERG [Concomitant]
  6. PANCRELIPASE (PANCRELIPASE) [Concomitant]
  7. NEXIUM [Concomitant]
  8. MORPHINE [Concomitant]
  9. TYLENOL [Concomitant]
  10. XANAX [Concomitant]
  11. PROMETRIUM [Concomitant]
  12. ADVAIR DISKUS 100/50 [Concomitant]
  13. ALBUTEROL [Concomitant]
  14. SINGULAIR ^MERCK^ (MONTELUKAST SODIUM) [Concomitant]
  15. TESTOSTERONE [Concomitant]
  16. PROGESTERONE [Concomitant]

REACTIONS (17)
  - ANOREXIA [None]
  - CHRONIC OBSTRUCTIVE PULMONARY DISEASE [None]
  - COUGH [None]
  - DIARRHOEA [None]
  - ECONOMIC PROBLEM [None]
  - EPISTAXIS [None]
  - FALL [None]
  - FOOT FRACTURE [None]
  - HEAD INJURY [None]
  - NAUSEA [None]
  - PANIC DISORDER [None]
  - RESTLESS LEGS SYNDROME [None]
  - RIB FRACTURE [None]
  - STARING [None]
  - SWELLING [None]
  - VOMITING [None]
  - WEIGHT DECREASED [None]
